FAERS Safety Report 7635537-5 (Version None)
Quarter: 2011Q3

REPORT INFORMATION
  Report Type: 
  Country: None (occurrence: None)
  Receive Date: 20110726
  Receipt Date: 20110720
  Transmission Date: 20111222
  Serious: Yes (Hospitalization, Other)
  Sender: FDA-Public Use
  Company Number: EG-SANOFI-AVENTIS-2011SA046544

PATIENT
  Age: 29 Year
  Sex: Female

DRUGS (3)
  1. INSULIN GLARGINE [Suspect]
     Route: 058
     Dates: start: 20100706
  2. ALDOMET [Concomitant]
  3. INSULIN GLARGINE [Suspect]
     Route: 058

REACTIONS (5)
  - ANTIPHOSPHOLIPID SYNDROME [None]
  - PROTEINURIA [None]
  - PREMATURE DELIVERY [None]
  - MATERNAL EXPOSURE DURING PREGNANCY [None]
  - PRE-ECLAMPSIA [None]
